FAERS Safety Report 12454384 (Version 1)
Quarter: 2016Q2

REPORT INFORMATION
  Report Type: Spontaneous
  Country: GB (occurrence: GB)
  Receive Date: 20160610
  Receipt Date: 20160610
  Transmission Date: 20160815
  Serious: Yes (Life-Threatening, Hospitalization, Other)
  Sender: FDA-Public Use
  Company Number: GB-ACCORD-041242

PATIENT
  Age: 60 Year
  Sex: Male
  Weight: 200 kg

DRUGS (18)
  1. CITALOPRAM [Concomitant]
     Active Substance: CITALOPRAM HYDROBROMIDE
  2. DOXAZOSIN [Concomitant]
     Active Substance: DOXAZOSIN\DOXAZOSIN MESYLATE
  3. LIRAGLUTID [Concomitant]
     Active Substance: LIRAGLUTIDE
  4. METFORMIN [Concomitant]
     Active Substance: METFORMIN HYDROCHLORIDE
  5. ZARZIO [Concomitant]
     Active Substance: FILGRASTIM
  6. METHOTREXATE [Suspect]
     Active Substance: METHOTREXATE
     Indication: PSORIATIC ARTHROPATHY
     Route: 048
     Dates: end: 20160504
  7. PREGABALIN. [Concomitant]
     Active Substance: PREGABALIN
  8. AMIKACIN [Concomitant]
     Active Substance: AMIKACIN
  9. RANITIDINE. [Concomitant]
     Active Substance: RANITIDINE
  10. LANTUS [Concomitant]
     Active Substance: INSULIN GLARGINE
  11. LEUPRORELIN/LEUPRORELIN ACETATE [Concomitant]
  12. ATORVASTATIN [Concomitant]
     Active Substance: ATORVASTATIN
  13. BENDROFLUMETHIAZIDE [Concomitant]
     Active Substance: BENDROFLUMETHIAZIDE
  14. IRBESARTAN. [Concomitant]
     Active Substance: IRBESARTAN
  15. FOLIC ACID. [Concomitant]
     Active Substance: FOLIC ACID
  16. MEROPENEM. [Concomitant]
     Active Substance: MEROPENEM
  17. PARACETAMOL [Concomitant]
     Active Substance: ACETAMINOPHEN
  18. PIPERACILLIN/TAZOBACTAM [Concomitant]

REACTIONS (1)
  - Neutropenic sepsis [Recovered/Resolved with Sequelae]

NARRATIVE: CASE EVENT DATE: 20160504
